FAERS Safety Report 5050363-1 (Version None)
Quarter: 2006Q3

REPORT INFORMATION
  Report Type: 
  Country: None (occurrence: None)
  Receive Date: 20060706
  Receipt Date: 20060629
  Transmission Date: 20061208
  Serious: Yes (Death, Hospitalization)
  Sender: FDA-Public Use
  Company Number: CLOF-10266

PATIENT
  Age: 67 Year
  Sex: Male

DRUGS (1)
  1. CLOFARABINE [Suspect]
     Indication: MYELODYSPLASTIC SYNDROME
     Dosage: 10 MG/M2 IV
     Route: 042
     Dates: start: 20060612, end: 20060616

REACTIONS (6)
  - ARRHYTHMIA [None]
  - BLOOD POTASSIUM INCREASED [None]
  - DYSPNOEA [None]
  - NECROTISING FASCIITIS [None]
  - POST PROCEDURAL COMPLICATION [None]
  - SEPTIC SHOCK [None]
